FAERS Safety Report 11221272 (Version 4)
Quarter: 2015Q3

REPORT INFORMATION
  Report Type: Report from Study
  Country: US (occurrence: US)
  Receive Date: 20150626
  Receipt Date: 20150817
  Transmission Date: 20151125
  Serious: Yes (Hospitalization, Other)
  Sender: FDA-Public Use
  Company Number: US-BIOGENIDEC-2015BI087628

PATIENT
  Age: 60 Year
  Sex: Male

DRUGS (1)
  1. PLEGRIDY [Suspect]
     Active Substance: PEGINTERFERON BETA-1A
     Indication: MULTIPLE SCLEROSIS
     Route: 058
     Dates: start: 20150603

REACTIONS (7)
  - Hallucination [Not Recovered/Not Resolved]
  - Dehydration [Recovered/Resolved]
  - Urinary tract infection [Recovered/Resolved]
  - Lethargy [Unknown]
  - Confusional state [Recovered/Resolved]
  - Metastases to central nervous system [Unknown]
  - Hypophagia [Unknown]

NARRATIVE: CASE EVENT DATE: 201506
